FAERS Safety Report 22038929 (Version 1)
Quarter: 2023Q1

REPORT INFORMATION
  Report Type: Spontaneous
  Country: US (occurrence: US)
  Receive Date: 20230227
  Receipt Date: 20230227
  Transmission Date: 20230418
  Serious: No
  Sender: FDA-Public Use
  Company Number: US-IGSA-BIG0021404

PATIENT
  Age: 43 Year
  Sex: Male
  Weight: 94 kg

DRUGS (2)
  1. PROLASTIN-C LIQUID [Suspect]
     Active Substance: .ALPHA.1-PROTEINASE INHIBITOR HUMAN
     Indication: Alpha-1 antitrypsin deficiency
     Dosage: 5640 MILLIGRAM, Q.M.T.
     Route: 065
     Dates: start: 20190808
  2. HEPARIN LOCK FLUSH [Concomitant]
     Active Substance: HEPARIN SODIUM

REACTIONS (3)
  - Lethargy [Recovering/Resolving]
  - Dizziness [Recovering/Resolving]
  - Incorrect drug administration rate [Recovering/Resolving]

NARRATIVE: CASE EVENT DATE: 20221204
